FAERS Safety Report 6914293-X (Version None)
Quarter: 2010Q3

REPORT INFORMATION
  Report Type: 
  Country: None (occurrence: None)
  Receive Date: 20100809
  Receipt Date: 20100802
  Transmission Date: 20110219
  Serious: Yes (Other)
  Sender: FDA-Public Use
  Company Number: B0667933A

PATIENT
  Sex: Male

DRUGS (4)
  1. LAMICTAL [Suspect]
     Indication: EPILEPSY
     Dosage: 16MG PER DAY
     Route: 048
     Dates: start: 20100624, end: 20100707
  2. LAMICTAL [Suspect]
     Dosage: 30MG PER DAY
     Route: 048
     Dates: start: 20100708, end: 20100712
  3. LAMICTAL [Suspect]
     Dosage: 60MG PER DAY
     Route: 048
     Dates: start: 20100713, end: 20100716
  4. EXCEGRAN [Concomitant]

REACTIONS (1)
  - EPILEPSY [None]
